FAERS Safety Report 17098835 (Version 1)
Quarter: 2019Q4

REPORT INFORMATION
  Report Type: Spontaneous
  Country: US (occurrence: US)
  Receive Date: 20191105
  Receipt Date: 20191105
  Transmission Date: 20200122
  Serious: Yes (Hospitalization)
  Sender: FDA-Public Use
  Company Number: None

PATIENT
  Age: 57 Year
  Sex: Male
  Weight: 82.5 kg

DRUGS (6)
  1. IFOSFAMIDE. [Suspect]
     Active Substance: IFOSFAMIDE
  2. TAXOL [Suspect]
     Active Substance: PACLITAXEL
  3. CISPLATIN. [Suspect]
     Active Substance: CISPLATIN
     Dates: end: 20191023
  4. CISPLATIN. [Suspect]
     Active Substance: CISPLATIN
  5. TAXOL [Suspect]
     Active Substance: PACLITAXEL
     Dates: end: 20191022
  6. IFOSFAMIDE. [Suspect]
     Active Substance: IFOSFAMIDE
     Dates: end: 20191023

REACTIONS (1)
  - Febrile neutropenia [None]

NARRATIVE: CASE EVENT DATE: 20191030
